FAERS Safety Report 12228225 (Version 1)
Quarter: 2016Q2

REPORT INFORMATION
  Report Type: Spontaneous
  Country: US (occurrence: US)
  Receive Date: 20160401
  Receipt Date: 20160401
  Transmission Date: 20160815
  Serious: No
  Sender: FDA-Public Use
  Company Number: US-AUROBINDO-AUR-APU-2016-02710

PATIENT
  Sex: Female

DRUGS (1)
  1. DULOXETINE DELAYED-RELEASE CAPSULES USP 20 MG [Suspect]
     Active Substance: DULOXETINE
     Indication: HEADACHE
     Dosage: 20 MG, ONCE A DAY
     Route: 065

REACTIONS (1)
  - Adverse event [Not Recovered/Not Resolved]
